FAERS Safety Report 13398855 (Version 3)
Quarter: 2018Q1

REPORT INFORMATION
  Report Type: Report from Study
  Country: US (occurrence: US)
  Receive Date: 20170404
  Receipt Date: 20180130
  Transmission Date: 20180508
  Serious: No
  Sender: FDA-Public Use
  Company Number: US-AMGEN-USASL2017047027

PATIENT
  Sex: Male

DRUGS (2)
  1. ENBREL [Suspect]
     Active Substance: ETANERCEPT
     Indication: RHEUMATOID ARTHRITIS
     Dosage: 50 MG, QWK
     Route: 065
     Dates: start: 2016
  2. ENBREL [Suspect]
     Active Substance: ETANERCEPT
     Dosage: 50 MG, Q2WK
     Route: 065
     Dates: end: 201712

REACTIONS (11)
  - Pain in extremity [Not Recovered/Not Resolved]
  - Pollakiuria [Unknown]
  - Back pain [Unknown]
  - Neck pain [Recovering/Resolving]
  - Gait disturbance [Unknown]
  - Arthralgia [Unknown]
  - Peripheral swelling [Unknown]
  - Unevaluable event [Unknown]
  - Off label use [Unknown]
  - Weight decreased [Unknown]
  - Intentional product misuse [Unknown]
